FAERS Safety Report 6388013-4 (Version None)
Quarter: 2009Q3

REPORT INFORMATION
  Report Type: 
  Country: None (occurrence: None)
  Receive Date: 20090930
  Receipt Date: 20090901
  Transmission Date: 20100115
  Serious: Yes (Life-Threatening)
  Sender: FDA-Public Use
  Company Number: 2009-1793

PATIENT
  Age: 50 Year
  Sex: Female

DRUGS (8)
  1. DYSPORT [Suspect]
     Indication: MUSCLE SPASTICITY
     Dosage: 500 UNITS, SINGLE CYCLE, INTRAMUSCULAR/SINGLE CYCLE/1000 UNITS, SEVEN MONTHS BETWEEN INJECTIONS),
     Route: 030
     Dates: start: 20081202
  2. DYSPORT [Suspect]
     Indication: MUSCLE SPASTICITY
     Dosage: 500 UNITS, SINGLE CYCLE, INTRAMUSCULAR/SINGLE CYCLE/1000 UNITS, SEVEN MONTHS BETWEEN INJECTIONS),
     Route: 030
     Dates: start: 20090722
  3. ATENOLOL [Concomitant]
  4. AMLODIPINE [Concomitant]
  5. RAMIPRIL [Concomitant]
  6. BENDROFLUAZIDE (BENDROFLUMETHIAZIDE) [Concomitant]
  7. PHENYTOIN [Concomitant]
  8. CITALOPRAM HYDROBROMIDE [Concomitant]

REACTIONS (1)
  - UNRESPONSIVE TO STIMULI [None]
